FAERS Safety Report 15757523 (Version 2)
Quarter: 2019Q1

REPORT INFORMATION
  Report Type: Spontaneous
  Country: RO (occurrence: RO)
  Receive Date: 20181224
  Receipt Date: 20190122
  Transmission Date: 20190417
  Serious: Yes (Life-Threatening, Hospitalization, Other)
  Sender: FDA-Public Use
  Company Number: RO-GILEAD-2018-0381901

PATIENT
  Age: 28 Year
  Sex: Female
  Weight: 54 kg

DRUGS (5)
  1. NORVIR [Concomitant]
     Active Substance: RITONAVIR
     Dosage: UNK
     Route: 048
     Dates: start: 200804, end: 201501
  2. VIREAD [Suspect]
     Active Substance: TENOFOVIR DISOPROXIL FUMARATE
     Indication: HEPATITIS B
     Dosage: UNK
     Route: 048
     Dates: start: 201210, end: 201501
  3. LAMIVUDINA [Concomitant]
     Active Substance: LAMIVUDINE
  4. PREZISTA [Concomitant]
     Active Substance: DARUNAVIR ETHANOLATE
     Dosage: UNK
     Dates: start: 201001, end: 201501
  5. INTELENCE [Concomitant]
     Active Substance: ETRAVIRINE
     Dosage: UNK
     Route: 048
     Dates: start: 201001, end: 201501

REACTIONS (7)
  - Portal hypertension [Recovered/Resolved]
  - Ascites [Recovered/Resolved]
  - Hypersplenism [Recovered/Resolved]
  - Chronic kidney disease [Recovered/Resolved]
  - Varices oesophageal [Recovered/Resolved]
  - Cholestasis [Recovered/Resolved]
  - Pancytopenia [Recovered/Resolved]

NARRATIVE: CASE EVENT DATE: 201412
